FAERS Safety Report 8395970 (Version 5)
Quarter: 2013Q4

REPORT INFORMATION
  Report Type: Report from Study
  Country: IE (occurrence: IE)
  Receive Date: 20120208
  Receipt Date: 20131125
  Transmission Date: 20140711
  Serious: Yes (Hospitalization)
  Sender: FDA-Public Use
  Company Number: IE-BIOGENIDEC-2012BI003820

PATIENT
  Age: 59 Year
  Sex: Female

DRUGS (8)
  1. TYSABRI [Suspect]
     Indication: MULTIPLE SCLEROSIS
     Route: 042
     Dates: start: 20070316, end: 20110727
  2. HYDROCORTISONE [Concomitant]
     Route: 042
  3. DELTACORTRIL [Concomitant]
     Route: 048
  4. CALCICHEW D3 [Concomitant]
     Route: 048
  5. OMEPRAZOLE [Concomitant]
     Route: 048
  6. SLOW K [Concomitant]
     Route: 048
  7. CLEXANE [Concomitant]
     Route: 058
     Dates: start: 20110924, end: 20111014
  8. OXYNORM [Concomitant]
     Route: 048
     Dates: start: 20110924, end: 20110924

REACTIONS (2)
  - Autoimmune pancreatitis [Recovered/Resolved]
  - Autoimmune disorder [Recovered/Resolved]
